FAERS Safety Report 4916328-2 (Version None)
Quarter: 2006Q1

REPORT INFORMATION
  Report Type: 
  Country: None (occurrence: None)
  Receive Date: 20060217
  Receipt Date: 20051018
  Transmission Date: 20060701
  Serious: Yes (Hospitalization, Other)
  Sender: FDA-Public Use
  Company Number: US-MERCK-0510USA07683

PATIENT
  Sex: Male
  Weight: 95 kg

DRUGS (3)
  1. VIOXX [Suspect]
     Indication: BACK PAIN
     Route: 048
     Dates: end: 20040701
  2. PERCOCET [Concomitant]
     Route: 065
  3. AMBIEN [Concomitant]
     Route: 065

REACTIONS (3)
  - BACK DISORDER [None]
  - JOINT DISLOCATION [None]
  - MYOCARDIAL INFARCTION [None]
